FAERS Safety Report 7098705-X (Version None)
Quarter: 2010Q4

REPORT INFORMATION
  Report Type: 
  Country: None (occurrence: None)
  Receive Date: 20101112
  Receipt Date: 20101103
  Transmission Date: 20110411
  Serious: Yes (Hospitalization)
  Sender: FDA-Public Use
  Company Number: AT-ASTRAZENECA-2010SE52293

PATIENT
  Sex: Female

DRUGS (3)
  1. ARIMIDEX [Suspect]
     Indication: BREAST CANCER
     Route: 048
     Dates: start: 20100628
  2. THYREX [Concomitant]
     Indication: HYPOTHYROIDISM
     Route: 048
  3. TAMOXIFEN [Concomitant]
     Indication: BREAST CANCER
     Dates: start: 20050819, end: 20100628

REACTIONS (3)
  - MALIGNANT NEOPLASM OF UTERINE ADNEXA [None]
  - OVARIAN CYST [None]
  - POSTMENOPAUSAL HAEMORRHAGE [None]
